FAERS Safety Report 25132828 (Version 1)
Quarter: 2025Q1

REPORT INFORMATION
  Report Type: Spontaneous
  Country: GB (occurrence: GB)
  Receive Date: 20250328
  Receipt Date: 20250328
  Transmission Date: 20250409
  Serious: Yes (Hospitalization, Disabling, Other)
  Sender: CELLTRION
  Company Number: GB-CELLTRION INC.-2025GB009080

PATIENT

DRUGS (1)
  1. YUFLYMA [Suspect]
     Active Substance: ADALIMUMAB-AATY
     Indication: Rheumatoid arthritis
     Route: 058
     Dates: start: 202411

REACTIONS (2)
  - Immobile [Unknown]
  - Malaise [Unknown]
